FAERS Safety Report 5450241-X (Version None)
Quarter: 2007Q3

REPORT INFORMATION
  Report Type: 
  Country: None (occurrence: None)
  Receive Date: 20070912
  Receipt Date: 20070904
  Transmission Date: 20080115
  Serious: Yes (Other)
  Sender: FDA-Public Use
  Company Number: FR-PFIZER INC-2007018334

PATIENT
  Age: 50 Year
  Sex: Male

DRUGS (2)
  1. ALDACTONE [Suspect]
     Route: 048
     Dates: start: 20070211, end: 20070214
  2. LASIX [Suspect]
     Route: 048
     Dates: start: 20070125, end: 20070224

REACTIONS (3)
  - ECCHYMOSIS [None]
  - PURPURA [None]
  - THROMBOCYTOPENIA [None]
